FAERS Safety Report 4424686-0 (Version None)
Quarter: 2004Q3

REPORT INFORMATION
  Report Type: 
  Country: None (occurrence: None)
  Receive Date: 20040809
  Receipt Date: 20040729
  Transmission Date: 20050211
  Serious: Yes (Death, Other)
  Sender: FDA-Public Use
  Company Number: JP-2004-029633

PATIENT
  Age: 59 Year
  Sex: Female

DRUGS (4)
  1. FLUDARA [Suspect]
     Indication: STEM CELL TRANSPLANT
     Dosage: 30 MG/M2, 1X/DAY, IV DRIP
     Route: 041
     Dates: start: 20040629, end: 20040704
  2. BUSULFAN (BUSULFAN) [Concomitant]
  3. SANDIMMUNE [Concomitant]
  4. FRAGMIN [Concomitant]

REACTIONS (5)
  - DEPRESSED LEVEL OF CONSCIOUSNESS [None]
  - HEADACHE POSTOPERATIVE [None]
  - POST PROCEDURAL COMPLICATION [None]
  - RESPIRATORY DEPRESSION [None]
  - SUBDURAL HAEMATOMA [None]
